FAERS Safety Report 8882312 (Version 1)
Quarter: 2012Q4

REPORT INFORMATION
  Report Type: 
  Country: US (occurrence: US)
  Receive Date: 20121102
  Receipt Date: 20121102
  Transmission Date: 20130627
  Serious: No
  Sender: FDA-Public Use
  Company Number: US-009507513-1210USA010758

PATIENT
  Sex: Female

DRUGS (6)
  1. VYTORIN [Suspect]
     Indication: HYPERCHOLESTEROLAEMIA
     Dosage: 10/20 mg, qd
     Route: 048
  2. METOPROLOL [Concomitant]
  3. ENALAPRIL MALEATE [Concomitant]
  4. LASIX (FUROSEMIDE SODIUM) [Concomitant]
  5. GABAPENTIN [Concomitant]
  6. GOODY^S HEADACHE POWDERS [Concomitant]

REACTIONS (2)
  - Myalgia [Not Recovered/Not Resolved]
  - Headache [Unknown]
